FAERS Safety Report 8060578-6 (Version None)
Quarter: 2012Q1

REPORT INFORMATION
  Report Type: 
  Country: None (occurrence: None)
  Receive Date: 20120120
  Receipt Date: 20120117
  Transmission Date: 20120608
  Serious: Yes (Other)
  Sender: FDA-Public Use
  Company Number: PHHY2010US54269

PATIENT
  Sex: Female

DRUGS (6)
  1. RECLAST [Suspect]
     Dosage: 5 MG, ONCE YEAR
     Route: 042
     Dates: start: 20100408
  2. IBUPROFEN (ADVIL) [Concomitant]
     Dosage: 2 UKN, BID
  3. RECLAST [Suspect]
     Indication: OSTEOPOROSIS
     Dosage: 5 MG, ONCE YEAR
     Route: 042
     Dates: start: 20090305
  4. IMIPRAMINE [Concomitant]
     Dosage: 50 MG, BID
     Route: 048
  5. LEVOXYL [Concomitant]
     Indication: HYPOTHYROIDISM
     Dosage: 50 UG, QD
     Route: 048
  6. SINGULAIR [Concomitant]
     Dosage: 10 MG, UNK
     Route: 048

REACTIONS (5)
  - BONE DISORDER [None]
  - EXPOSED BONE IN JAW [None]
  - OSTEONECROSIS OF JAW [None]
  - ERYTHEMA [None]
  - TENDERNESS [None]
